FAERS Safety Report 16573397 (Version 2)
Quarter: 2019Q3

REPORT INFORMATION
  Report Type: Spontaneous
  Country: US (occurrence: US)
  Receive Date: 20190715
  Receipt Date: 20190819
  Transmission Date: 20191004
  Serious: No
  Sender: FDA-Public Use
  Company Number: US-BIOGEN-2019BI00761587

PATIENT
  Sex: Male

DRUGS (1)
  1. AVONEX [Suspect]
     Active Substance: INTERFERON BETA-1A
     Indication: MULTIPLE SCLEROSIS
     Route: 030

REACTIONS (7)
  - Injection site pain [Unknown]
  - Insomnia [Unknown]
  - Confusional state [Unknown]
  - Fatigue [Unknown]
  - Malaise [Unknown]
  - Migraine [Unknown]
  - Memory impairment [Unknown]
